FAERS Safety Report 6188702-0 (Version None)
Quarter: 2009Q2

REPORT INFORMATION
  Report Type: 
  Country: None (occurrence: None)
  Receive Date: 20090511
  Receipt Date: 20090511
  Transmission Date: 20091009
  Serious: Yes (Death)
  Sender: FDA-Public Use
  Company Number: None

PATIENT

DRUGS (1)
  1. AVELOX [Suspect]

REACTIONS (2)
  - CARDIAC FAILURE [None]
  - RENAL FAILURE [None]
